FAERS Safety Report 5321704-2 (Version None)
Quarter: 2007Q2

REPORT INFORMATION
  Report Type: 
  Country: None (occurrence: None)
  Receive Date: 20070510
  Receipt Date: 20070427
  Transmission Date: 20071010
  Serious: Yes (Hospitalization)
  Sender: FDA-Public Use
  Company Number: AU-SHR-AU-2005-009412

PATIENT
  Age: 40 Year
  Sex: Male

DRUGS (1)
  1. GM-CSF (9874) [Suspect]
     Indication: CROHN'S DISEASE
     Dosage: 6 A?G/KG, 1X/DAY
     Route: 058
     Dates: start: 20050523, end: 20050531

REACTIONS (1)
  - CHEST PAIN [None]
